FAERS Safety Report 18519207 (Version 1)
Quarter: 2020Q4

REPORT INFORMATION
  Report Type: Spontaneous
  Country: CN (occurrence: CN)
  Receive Date: 20201118
  Receipt Date: 20201118
  Transmission Date: 20210114
  Serious: Yes (Other)
  Sender: FDA-Public Use
  Company Number: CN-ASTRAZENECA-2020SF51335

PATIENT
  Sex: Female

DRUGS (3)
  1. TAGRISSO [Suspect]
     Active Substance: OSIMERTINIB
     Indication: NON-SMALL CELL LUNG CANCER
     Route: 048
     Dates: start: 202009
  2. MANNITOL. [Concomitant]
     Active Substance: MANNITOL
  3. IRESSA [Suspect]
     Active Substance: GEFITINIB
     Route: 048
     Dates: start: 2019

REACTIONS (5)
  - Gene mutation [Unknown]
  - Coagulopathy [Unknown]
  - Central nervous system lesion [Unknown]
  - Drug resistance [Unknown]
  - Intracranial pressure increased [Unknown]
